FAERS Safety Report 6879660-1 (Version None)
Quarter: 2010Q2

REPORT INFORMATION
  Report Type: 
  Country: None (occurrence: None)
  Receive Date: 20100625
  Receipt Date: 20090923
  Transmission Date: 20101027
  Serious: Yes (Other)
  Sender: FDA-Public Use
  Company Number: 2009274619

PATIENT
  Age: 54 Year
  Sex: Female
  Weight: 65.8 kg

DRUGS (3)
  1. ESTRING [Suspect]
     Indication: VULVOVAGINAL DRYNESS
     Dates: start: 20090803, end: 20090920
  2. SYNTHROID [Concomitant]
  3. CYTOMEL [Concomitant]

REACTIONS (3)
  - ABDOMINAL DISTENSION [None]
  - HOT FLUSH [None]
  - WEIGHT INCREASED [None]
